FAERS Safety Report 8989064 (Version 1)
Quarter: 2012Q4

REPORT INFORMATION
  Report Type: Spontaneous
  Country: US (occurrence: None)
  Receive Date: 20121224
  Receipt Date: 20121224
  Transmission Date: 20130627
  Serious: No
  Sender: FDA-Public Use
  Company Number: None

PATIENT
  Age: 59 Year
  Sex: Male
  Weight: 118 kg

DRUGS (1)
  1. ENBREL [Suspect]
     Indication: REACTIVE ARTHRITIS
     Dosage: 50mg Qweek sq
4 month supply - not used
     Route: 058

REACTIONS (2)
  - Syringe issue [None]
  - Device ineffective [None]
